FAERS Safety Report 21683521 (Version 1)
Quarter: 2022Q4

REPORT INFORMATION
  Report Type: Report from Study
  Country: US (occurrence: US)
  Receive Date: 20221205
  Receipt Date: 20221205
  Transmission Date: 20230112
  Serious: Yes (Other)
  Sender: FDA-Public Use
  Company Number: US-EXELIXIS-CABO-22058491

PATIENT
  Sex: Female

DRUGS (2)
  1. CABOMETYX [Suspect]
     Active Substance: CABOZANTINIB S-MALATE
     Indication: Illness
     Dosage: 40 MG, QD
     Route: 048
     Dates: start: 202209
  2. CABOMETYX [Suspect]
     Active Substance: CABOZANTINIB S-MALATE
     Dosage: 40 MG, QOD
     Route: 048

REACTIONS (8)
  - Deafness [Unknown]
  - Migraine [Unknown]
  - Pharyngeal ulceration [Unknown]
  - Laboratory test abnormal [Unknown]
  - Epistaxis [Unknown]
  - Haemoptysis [Unknown]
  - Product prescribing issue [Unknown]
  - Inappropriate schedule of product administration [Unknown]
